FAERS Safety Report 8146952-8 (Version None)
Quarter: 2012Q1

REPORT INFORMATION
  Report Type: 
  Country: None (occurrence: None)
  Receive Date: 20120217
  Receipt Date: 20120216
  Transmission Date: 20120608
  Serious: Yes (Other)
  Sender: FDA-Public Use
  Company Number: MY-ABBOTT-12P-101-0905554-00

PATIENT
  Age: 27 Year
  Sex: Male

DRUGS (3)
  1. PHENYTOIN [Suspect]
     Indication: EPILEPSY
     Dosage: DAILY DOSE: 300MG
     Route: 048
  2. VALPROIC ACID [Suspect]
     Indication: EPILEPSY
     Dosage: DAILY DOSE: 600MG
     Route: 048
     Dates: start: 20110125
  3. HYDROCHLOROTHIAZIDE [Concomitant]
     Indication: PRODUCT USED FOR UNKNOWN INDICATION

REACTIONS (4)
  - ACUTE HEPATIC FAILURE [None]
  - RASH PAPULAR [None]
  - JAUNDICE [None]
  - RASH MACULAR [None]
